FAERS Safety Report 23915536 (Version 2)
Quarter: 2024Q2

REPORT INFORMATION
  Report Type: Spontaneous
  Country: US (occurrence: US)
  Receive Date: 20240529
  Receipt Date: 20240617
  Transmission Date: 20240716
  Serious: No
  Sender: FDA-Public Use
  Company Number: US-Calliditas-2024CAL00812

PATIENT
  Age: 49 Year
  Sex: Male
  Weight: 79 kg

DRUGS (1)
  1. TARPEYO [Suspect]
     Active Substance: BUDESONIDE
     Indication: IgA nephropathy
     Route: 048
     Dates: start: 20240327

REACTIONS (5)
  - Gastroenteritis viral [Unknown]
  - Food poisoning [Unknown]
  - Nausea [Unknown]
  - Pain [Unknown]
  - Product dose omission issue [Unknown]
